FAERS Safety Report 5362321-8 (Version None)
Quarter: 2007Q2

REPORT INFORMATION
  Report Type: 
  Country: None (occurrence: None)
  Receive Date: 20070619
  Receipt Date: 20070608
  Transmission Date: 20071010
  Serious: Yes (Other)
  Sender: FDA-Public Use
  Company Number: B0475548A

PATIENT
  Age: 35 Year
  Sex: Female
  Weight: 101 kg

DRUGS (8)
  1. LAMOTRIGINE [Suspect]
     Indication: PAIN
     Dosage: 25MG TWICE PER DAY
     Route: 048
     Dates: start: 20070416, end: 20070508
  2. BUMETANIDE [Concomitant]
     Indication: SWELLING
     Route: 048
  3. CETIRIZINE HCL [Concomitant]
     Route: 048
  4. DURAGESIC-100 [Concomitant]
     Indication: PAIN
     Route: 062
  5. FLUOXETINE [Concomitant]
     Indication: DEPRESSION
     Route: 048
  6. LANSOPRAZOLE [Concomitant]
     Route: 048
  7. ORLISTAT [Concomitant]
     Indication: OBESITY
     Dosage: 120MG THREE TIMES PER DAY
  8. UNKNOWN DRUG [Concomitant]
     Indication: HEADACHE
     Dosage: 40MG TWICE PER DAY

REACTIONS (8)
  - EYELID OEDEMA [None]
  - HAEMANGIOMA [None]
  - HAEMORRHAGE [None]
  - HYPERSENSITIVITY [None]
  - PAIN [None]
  - RASH PAPULAR [None]
  - SWELLING [None]
  - WOUND SECRETION [None]
